FAERS Safety Report 7177604-9 (Version None)
Quarter: 2010Q4

REPORT INFORMATION
  Report Type: 
  Country: None (occurrence: None)
  Receive Date: 20101220
  Receipt Date: 20101210
  Transmission Date: 20110411
  Serious: Yes (Other)
  Sender: FDA-Public Use
  Company Number: US-JNJFOC-20101204744

PATIENT
  Sex: Female
  Weight: 66.68 kg

DRUGS (6)
  1. REMICADE [Suspect]
     Indication: CROHN'S DISEASE
     Route: 042
  2. DESIPRAMINE HCL [Concomitant]
     Indication: CROHN'S DISEASE
     Route: 048
  3. OMEPRAZOLE [Concomitant]
     Indication: DYSPEPSIA
     Route: 048
  4. TRILEPTAL [Concomitant]
     Indication: BIPOLAR DISORDER
     Dosage: ONE IN AM AND PM
     Route: 048
  5. MERCAPTOPURINE [Concomitant]
     Indication: CROHN'S DISEASE
     Dosage: 1/2 TAB DAILY
     Route: 048
  6. PROZAC [Concomitant]
     Indication: DEPRESSION
     Route: 047

REACTIONS (6)
  - DRUG INEFFECTIVE [None]
  - INFUSION RELATED REACTION [None]
  - LYMPHADENOPATHY [None]
  - SENSORY DISTURBANCE [None]
  - SYNCOPE [None]
  - VOMITING [None]
